FAERS Safety Report 6268264-X (Version None)
Quarter: 2009Q3

REPORT INFORMATION
  Report Type: 
  Country: None (occurrence: None)
  Receive Date: 20090714
  Receipt Date: 20090714
  Transmission Date: 20100115
  Serious: No
  Sender: FDA-Public Use
  Company Number: None

PATIENT
  Age: 70 Year
  Sex: Female
  Weight: 68.0396 kg

DRUGS (2)
  1. ZICAM NAAL SPRAY ON MARKET DO NOT KNOW [Suspect]
     Indication: MULTIPLE ALLERGIES
     Dosage: 1 SPRAY 2 TIMES A DAY NASAL
     Route: 045
     Dates: start: 20090308, end: 20090418
  2. ZICAM NAAL SPRAY ON MARKET DO NOT KNOW [Suspect]
     Indication: NASOPHARYNGITIS
     Dosage: 1 SPRAY 2 TIMES A DAY NASAL
     Route: 045
     Dates: start: 20090308, end: 20090418

REACTIONS (1)
  - ANOSMIA [None]
